FAERS Safety Report 24257106 (Version 2)
Quarter: 2024Q3

REPORT INFORMATION
  Report Type: Report from Study
  Country: US (occurrence: US)
  Receive Date: 20240828
  Receipt Date: 20240902
  Transmission Date: 20241016
  Serious: Yes (Other)
  Sender: ABBVIE
  Company Number: US-ABBVIE-5891100

PATIENT
  Age: 70 Year
  Sex: Female
  Weight: 108 kg

DRUGS (15)
  1. RINVOQ [Suspect]
     Active Substance: UPADACITINIB
     Indication: Colitis ulcerative
     Dosage: STRENGTH: 30 MG
     Route: 048
     Dates: start: 202303
  2. ROFLUMILAST [Concomitant]
     Active Substance: ROFLUMILAST
     Indication: Chronic obstructive pulmonary disease
  3. SINGULAIR [Concomitant]
     Active Substance: MONTELUKAST SODIUM
     Indication: Asthma
  4. GABAPENTIN [Concomitant]
     Active Substance: GABAPENTIN
     Indication: Neuropathy peripheral
  5. JARDIANCE [Concomitant]
     Active Substance: EMPAGLIFLOZIN
     Indication: Cardiac failure congestive
  6. XARELTO [Concomitant]
     Active Substance: RIVAROXABAN
     Indication: Antiphospholipid antibodies
  7. BUMEX [Concomitant]
     Active Substance: BUMETANIDE
     Indication: Fluid retention
  8. OPSUMIT [Concomitant]
     Active Substance: MACITENTAN
     Indication: Pulmonary arterial hypertension
  9. SPIRONOLACTONE [Concomitant]
     Active Substance: SPIRONOLACTONE
     Indication: Fluid retention
  10. XOPENEX [Concomitant]
     Active Substance: LEVALBUTEROL HYDROCHLORIDE
     Indication: Asthma
  11. TYLENOL [Concomitant]
     Active Substance: ACETAMINOPHEN
     Indication: Osteoarthritis
  12. PROLIA [Concomitant]
     Active Substance: DENOSUMAB
     Indication: Osteoporosis
  13. CARDIZEM [Concomitant]
     Active Substance: DILTIAZEM HYDROCHLORIDE
     Indication: Atrial tachycardia
  14. FLONASE [Concomitant]
     Active Substance: FLUTICASONE PROPIONATE
     Indication: Multiple allergies
  15. POTASSIUM CHLORIDE [Concomitant]
     Active Substance: POTASSIUM CHLORIDE
     Indication: Hypokalaemia

REACTIONS (1)
  - Osteoarthritis [Recovered/Resolved]

NARRATIVE: CASE EVENT DATE: 20240802
